FAERS Safety Report 6046784-0 (Version None)
Quarter: 2009Q1

REPORT INFORMATION
  Report Type: 
  Country: None (occurrence: None)
  Receive Date: 20090122
  Receipt Date: 20090116
  Transmission Date: 20090719
  Serious: Yes (Death, Hospitalization)
  Sender: FDA-Public Use
  Company Number: A0696650A

PATIENT
  Age: 39 Year
  Sex: Female
  Weight: 84.5 kg

DRUGS (5)
  1. AVANDIA [Suspect]
     Dosage: 4MG PER DAY
     Route: 048
     Dates: start: 20041004, end: 20060401
  2. METFORMIN [Concomitant]
     Dates: start: 20030523, end: 20050830
  3. DIABETA [Concomitant]
     Dates: start: 20030523, end: 20050830
  4. LIPITOR [Concomitant]
     Dates: end: 20040813
  5. LEXAPRO [Concomitant]

REACTIONS (5)
  - CARDIAC FAILURE CONGESTIVE [None]
  - CARDIOMEGALY [None]
  - DEATH [None]
  - MYOCARDIAL INFARCTION [None]
  - THROMBOSIS [None]
